FAERS Safety Report 11868010 (Version 2)
Quarter: 2016Q1

REPORT INFORMATION
  Report Type: Report from Study
  Country: CA (occurrence: CA)
  Receive Date: 20151224
  Receipt Date: 20160219
  Transmission Date: 20160526
  Serious: Yes (Other)
  Sender: FDA-Public Use
  Company Number: CA-REGENERON PHARMACEUTICALS, INC.-2015-15034

PATIENT

DRUGS (3)
  1. EYLEA [Suspect]
     Active Substance: AFLIBERCEPT
     Indication: DIABETIC RETINAL OEDEMA
     Dosage: ONCE IN BOTH EYES
     Route: 031
     Dates: start: 20150408, end: 20150408
  2. EYLEA [Suspect]
     Active Substance: AFLIBERCEPT
     Dosage: ONCE IN BOTH EYES
     Route: 031
     Dates: start: 20150513, end: 20150513
  3. EYLEA [Suspect]
     Active Substance: AFLIBERCEPT
     Dosage: BOTH EYES
     Route: 031
     Dates: start: 20150617, end: 20150617

REACTIONS (1)
  - Retinal deposits [Unknown]

NARRATIVE: CASE EVENT DATE: 20150408
